FAERS Safety Report 8128339-7 (Version None)
Quarter: 2012Q1

REPORT INFORMATION
  Report Type: 
  Country: None (occurrence: None)
  Receive Date: 20120210
  Receipt Date: 20120207
  Transmission Date: 20120608
  Serious: Yes (Other)
  Sender: FDA-Public Use
  Company Number: US-PFIZER INC-2012033711

PATIENT
  Sex: Male
  Weight: 112.93 kg

DRUGS (1)
  1. LYRICA [Suspect]
     Indication: DIABETIC NEUROPATHY
     Dosage: 25 MG, 1X/DAY
     Route: 048
     Dates: start: 20120205, end: 20120207

REACTIONS (5)
  - SUICIDAL IDEATION [None]
  - DEPRESSION [None]
  - PHARYNGEAL OEDEMA [None]
  - VISION BLURRED [None]
  - OEDEMA PERIPHERAL [None]
